FAERS Safety Report 8516251-0 (Version None)
Quarter: 2012Q3

REPORT INFORMATION
  Report Type: 
  Country: None (occurrence: None)
  Receive Date: 20120717
  Receipt Date: 20120713
  Transmission Date: 20120928
  Serious: No
  Sender: FDA-Public Use
  Company Number: US-PFIZER INC-2012169734

PATIENT
  Sex: Female

DRUGS (2)
  1. SINGULAIR [Concomitant]
     Indication: ASTHMA
     Dosage: UNK
  2. MEDROXYPROGESTERONE ACETATE [Suspect]
     Dosage: 150 MG/ML, EVERY 3 MONTHS

REACTIONS (2)
  - INCORRECT DOSE ADMINISTERED [None]
  - PRODUCT QUALITY ISSUE [None]
